FAERS Safety Report 20748896 (Version 4)
Quarter: 2022Q3

REPORT INFORMATION
  Report Type: Spontaneous
  Country: US (occurrence: US)
  Receive Date: 20220426
  Receipt Date: 20220713
  Transmission Date: 20221026
  Serious: Yes (Life-Threatening, Hospitalization, Other)
  Sender: FDA-Public Use
  Company Number: US-PFIZER INC-202200582274

PATIENT
  Age: 65 Year
  Sex: Female
  Weight: 92.99 kg

DRUGS (3)
  1. GENOTROPIN [Suspect]
     Active Substance: SOMATROPIN
     Indication: Meningitis
     Dosage: UNK
  2. GENOTROPIN [Suspect]
     Active Substance: SOMATROPIN
     Dosage: UNK
  3. GENOTROPIN [Suspect]
     Active Substance: SOMATROPIN
     Dosage: 0.06 UG, DAILY

REACTIONS (23)
  - Pneumonia [Unknown]
  - Sepsis [Unknown]
  - Fall [Unknown]
  - Urinary incontinence [Unknown]
  - Dyspnoea [Unknown]
  - Lung disorder [Unknown]
  - Heart rate abnormal [Unknown]
  - Hallucination, visual [Unknown]
  - Hypoxia [Unknown]
  - Memory impairment [Unknown]
  - Body height decreased [Unknown]
  - Weight increased [Unknown]
  - Osteoporosis [Unknown]
  - Conversion disorder [Unknown]
  - Alopecia [Unknown]
  - Pain [Unknown]
  - Confusional state [Unknown]
  - Cerebral disorder [Unknown]
  - Expired device used [Unknown]
  - Off label use [Unknown]
  - Device mechanical issue [Unknown]
  - Product dose omission issue [Unknown]
  - Device power source issue [Unknown]
